FAERS Safety Report 9229932 (Version 1)
Quarter: 2013Q1

REPORT INFORMATION
  Report Type: Spontaneous
  Country: US (occurrence: None)
  Receive Date: 20121031
  Receipt Date: 20121031
  Transmission Date: 20140127
  Serious: Yes (Hospitalization)
  Sender: FDA-Public Use
  Company Number: DSA_56277_2012

PATIENT
  Sex: Female

DRUGS (1)
  1. ATIVAN [Suspect]
     Indication: PRODUCT USED FOR UNKNOWN INDICATION

REACTIONS (5)
  - Drug hypersensitivity [None]
  - Back pain [None]
  - Hepatic enzyme increased [None]
  - Pain [None]
  - Feeling abnormal [None]
